FAERS Safety Report 16933637 (Version 1)
Quarter: 2019Q4

REPORT INFORMATION
  Report Type: Spontaneous
  Country: JP (occurrence: JP)
  Receive Date: 20191018
  Receipt Date: 20191018
  Transmission Date: 20200122
  Serious: Yes (Hospitalization, Other)
  Sender: FDA-Public Use
  Company Number: JP-SANIK-2019SA286625AA

PATIENT
  Age: 82 Year
  Sex: Female

DRUGS (4)
  1. HYDROXYCARBAMIDE [Concomitant]
     Active Substance: HYDROXYUREA
     Dosage: ORAL INTAKE RESUMED ON DAY 22 OF DISEASE
     Route: 048
  2. PLAVIX [Suspect]
     Active Substance: CLOPIDOGREL BISULFATE
     Indication: POLYCYTHAEMIA VERA
     Dosage: UNK
     Route: 048
  3. HYDROXYCARBAMIDE [Concomitant]
     Active Substance: HYDROXYUREA
     Indication: POLYCYTHAEMIA VERA
     Dosage: UNK
     Route: 048
  4. PLAVIX [Suspect]
     Active Substance: CLOPIDOGREL BISULFATE
     Dosage: ORAL INTAKE RESUMED ON DAY 22 OF DISEASE
     Route: 048

REACTIONS (12)
  - Altered state of consciousness [Recovering/Resolving]
  - Splenic haematoma [Recovering/Resolving]
  - Anaemia [Recovering/Resolving]
  - Disseminated intravascular coagulation [Recovering/Resolving]
  - Haemorrhagic ascites [Recovering/Resolving]
  - Shock haemorrhagic [Recovering/Resolving]
  - Septic shock [Recovering/Resolving]
  - Diverticulitis [Recovering/Resolving]
  - Movement disorder [Recovering/Resolving]
  - Blood pressure decreased [Recovering/Resolving]
  - Peritonitis [Recovering/Resolving]
  - Splenic rupture [Recovering/Resolving]
